FAERS Safety Report 4967563-9 (Version None)
Quarter: 2006Q2

REPORT INFORMATION
  Report Type: 
  Country: None (occurrence: None)
  Receive Date: 20060410
  Receipt Date: 20060406
  Transmission Date: 20061013
  Serious: Yes (Hospitalization)
  Sender: FDA-Public Use
  Company Number: FR-GLAXOSMITHKLINE-B0419332A

PATIENT
  Age: 78 Year
  Sex: Female

DRUGS (9)
  1. CLAMOXYL [Suspect]
     Indication: ENDOCARDITIS
     Route: 048
     Dates: start: 20060111, end: 20060120
  2. GENTAMICIN [Suspect]
     Indication: ENDOCARDITIS
     Route: 042
     Dates: start: 20060112, end: 20060118
  3. TAHOR [Concomitant]
     Dosage: 10MG PER DAY
     Route: 048
  4. ASPEGIC 1000 [Concomitant]
     Dosage: 250MG PER DAY
     Route: 048
     Dates: start: 20060108, end: 20060112
  5. PERFALGAN [Concomitant]
     Dosage: 1G PER DAY
     Route: 065
     Dates: start: 20060106
  6. AUGMENTIN '125' [Concomitant]
     Dosage: 2G PER DAY
     Route: 065
     Dates: start: 20060107, end: 20060111
  7. SOLU-MEDROL [Concomitant]
     Dosage: 160MG PER DAY
     Route: 065
     Dates: start: 20060107, end: 20060109
  8. VANCOCIN HCL [Concomitant]
     Dosage: 2G PER DAY
     Route: 042
     Dates: start: 20060111
  9. LOVENOX [Concomitant]
     Route: 042
     Dates: start: 20060106

REACTIONS (1)
  - RENAL FAILURE ACUTE [None]
